FAERS Safety Report 9312921 (Version 1)
Quarter: 2013Q2

REPORT INFORMATION
  Report Type: Spontaneous
  Country: BR (occurrence: BR)
  Receive Date: 20130528
  Receipt Date: 20130528
  Transmission Date: 20140414
  Serious: Yes (Hospitalization, Other)
  Sender: FDA-Public Use
  Company Number: BR-ASTRAZENECA-2013SE35040

PATIENT
  Age: 18 Year
  Sex: Male
  Weight: 38 kg

DRUGS (7)
  1. LOSEC MUPS [Suspect]
     Indication: GASTRITIS PROPHYLAXIS
     Dosage: EVERY MORNING
     Route: 048
     Dates: start: 2007
  2. SLOW-K [Concomitant]
     Indication: ELECTROLYTE SUBSTITUTION THERAPY
     Dates: end: 201302
  3. POTASSIUM CHLORIDE [Concomitant]
     Indication: ELECTROLYTE SUBSTITUTION THERAPY
     Dosage: THREE TIMES A DAY
  4. VALPAKINE [Concomitant]
     Indication: CONVULSION PROPHYLAXIS
  5. HIDANTAL [Concomitant]
     Indication: CONVULSION PROPHYLAXIS
  6. ALDACTONE [Concomitant]
     Dosage: THREE TIMES A DAY
  7. MAGNESIUM SULFATE [Concomitant]
     Indication: MINERAL SUPPLEMENTATION

REACTIONS (3)
  - Blood potassium decreased [Recovered/Resolved]
  - Scoliosis [Recovered/Resolved]
  - Sinusitis [Recovered/Resolved]
